FAERS Safety Report 13102558 (Version 3)
Quarter: 2017Q1

REPORT INFORMATION
  Report Type: Spontaneous
  Country: US (occurrence: US)
  Receive Date: 20170110
  Receipt Date: 20170302
  Transmission Date: 20170428
  Serious: Yes (Disabling, Other)
  Sender: FDA-Public Use
  Company Number: US-009507513-1701USA003073

PATIENT
  Age: 83 Year
  Sex: Female
  Weight: 90.7 kg

DRUGS (3)
  1. JANUVIA [Suspect]
     Active Substance: SITAGLIPTIN PHOSPHATE
     Dosage: 1/4 OF 50 MG TABLET ONCE DAILY
     Route: 048
     Dates: start: 2016, end: 20161209
  2. JANUVIA [Suspect]
     Active Substance: SITAGLIPTIN PHOSPHATE
     Dosage: 1/2 OF 50 MG TABLET ONCE DAILY
     Route: 048
     Dates: start: 20161128, end: 2016
  3. JANUVIA [Suspect]
     Active Substance: SITAGLIPTIN PHOSPHATE
     Indication: BLOOD GLUCOSE
     Dosage: 50 MG, QD
     Route: 048
     Dates: start: 20161125, end: 20161127

REACTIONS (24)
  - Skin exfoliation [Not Recovered/Not Resolved]
  - Cardiac disorder [Unknown]
  - Urine output increased [Not Recovered/Not Resolved]
  - Pain in extremity [Not Recovered/Not Resolved]
  - Pulmonary pain [Unknown]
  - Adverse event [Not Recovered/Not Resolved]
  - Nightmare [Unknown]
  - Pyrexia [Not Recovered/Not Resolved]
  - Wrong technique in product usage process [Unknown]
  - Mobility decreased [Not Recovered/Not Resolved]
  - Urinary incontinence [Not Recovered/Not Resolved]
  - Nasal congestion [Not Recovered/Not Resolved]
  - Visual acuity reduced [Not Recovered/Not Resolved]
  - Arthralgia [Not Recovered/Not Resolved]
  - Oropharyngeal pain [Unknown]
  - Malaise [Unknown]
  - Headache [Not Recovered/Not Resolved]
  - Lacrimation increased [Not Recovered/Not Resolved]
  - Abasia [Not Recovered/Not Resolved]
  - Swelling face [Not Recovered/Not Resolved]
  - Constipation [Recovered/Resolved]
  - Intentional underdose [Unknown]
  - Urinary tract disorder [Not Recovered/Not Resolved]
  - Oral pain [Unknown]

NARRATIVE: CASE EVENT DATE: 2016
